FAERS Safety Report 4705521-X (Version None)
Quarter: 2005Q2

REPORT INFORMATION
  Report Type: 
  Country: None (occurrence: None)
  Receive Date: 20050629
  Receipt Date: 20050107
  Transmission Date: 20051028
  Serious: Yes (Death)
  Sender: FDA-Public Use
  Company Number: 200510038EU

PATIENT
  Age: 52 Year
  Sex: Female
  Weight: 56 kg

DRUGS (3)
  1. FLUOROURACIL [Suspect]
     Indication: BREAST CANCER
     Dosage: 935 MG/DAY IV
     Route: 042
     Dates: start: 20040921, end: 20040921
  2. EPIRUBICIN [Suspect]
     Indication: BREAST CANCER
     Dosage: 115 MG/DAY IV
     Route: 042
     Dates: start: 20040921, end: 20040921
  3. CYCLOPHOSPHAMIDE [Suspect]
     Indication: BREAST CANCER
     Dosage: 935 MG/DAY IV
     Route: 042
     Dates: start: 20040921, end: 20040921

REACTIONS (1)
  - CEREBRAL HAEMORRHAGE [None]
